FAERS Safety Report 19872904 (Version 1)
Quarter: 2021Q3

REPORT INFORMATION
  Report Type: Spontaneous
  Country: US (occurrence: US)
  Receive Date: 20210923
  Receipt Date: 20210923
  Transmission Date: 20211014
  Serious: Yes (Hospitalization)
  Sender: FDA-Public Use
  Company Number: None

PATIENT
  Sex: Male

DRUGS (10)
  1. ALLOPURINOL. [Concomitant]
     Active Substance: ALLOPURINOL
  2. ZYTIGA [Concomitant]
     Active Substance: ABIRATERONE ACETATE
  3. PANTOPRAZOLE [Concomitant]
     Active Substance: PANTOPRAZOLE
  4. FAMOTIDINE. [Concomitant]
     Active Substance: FAMOTIDINE
  5. PREDNISONE. [Concomitant]
     Active Substance: PREDNISONE
  6. SO CHLORIDE [Concomitant]
  7. ABIRATERONE ACETATE 250 MG TAB [Suspect]
     Active Substance: ABIRATERONE ACETATE
     Indication: PROSTATE CANCER
     Route: 048
     Dates: start: 20210602
  8. DILTIAZEM. [Concomitant]
     Active Substance: DILTIAZEM
  9. METOPROLOL. [Concomitant]
     Active Substance: METOPROLOL
  10. TRIAMT/HCT [Concomitant]

REACTIONS (2)
  - Therapy interrupted [None]
  - Hospitalisation [None]
